FAERS Safety Report 17505217 (Version 3)
Quarter: 2020Q1

REPORT INFORMATION
  Report Type: Report from Study
  Country: US (occurrence: US)
  Receive Date: 20200305
  Receipt Date: 20200323
  Transmission Date: 20200409
  Serious: Yes (Hospitalization)
  Sender: FDA-Public Use
  Company Number: US-ACTELION-A-NJ2020-202675

PATIENT
  Sex: Female
  Weight: 58.5 kg

DRUGS (4)
  1. UPTRAVI [Suspect]
     Active Substance: SELEXIPAG
     Indication: PULMONARY ARTERIAL HYPERTENSION
     Dosage: 200 MCG, BID
     Route: 048
  2. ELIQUIS [Concomitant]
     Active Substance: APIXABAN
  3. NIFEDIPINE. [Concomitant]
     Active Substance: NIFEDIPINE
  4. OPSUMIT [Suspect]
     Active Substance: MACITENTAN
     Indication: PULMONARY ARTERIAL HYPERTENSION
     Dosage: 10 MG, QD
     Route: 048

REACTIONS (5)
  - Nephrolithiasis [Unknown]
  - Flank pain [Unknown]
  - Pneumonia [Unknown]
  - Renal failure [Unknown]
  - Dyspnoea [Unknown]
